FAERS Safety Report 8380073-4 (Version None)
Quarter: 2012Q2

REPORT INFORMATION
  Report Type: 
  Country: None (occurrence: None)
  Receive Date: 20120523
  Receipt Date: 20120510
  Transmission Date: 20120825
  Serious: Yes (Hospitalization)
  Sender: FDA-Public Use
  Company Number: US-GLAXOSMITHKLINE-A0978066A

PATIENT
  Sex: Female

DRUGS (2)
  1. AVANDIA [Suspect]
     Indication: DIABETES MELLITUS
     Dosage: 4MG TWICE PER DAY
     Route: 048
     Dates: start: 20041102, end: 20080429
  2. AVANDAMET [Suspect]
     Indication: DIABETES MELLITUS
     Route: 048
     Dates: start: 20041228, end: 20080429

REACTIONS (6)
  - CARDIAC FAILURE CONGESTIVE [None]
  - DIALYSIS [None]
  - POSTOPERATIVE RESPIRATORY DISTRESS [None]
  - MYOCARDIAL INFARCTION [None]
  - POSTOPERATIVE RENAL FAILURE [None]
  - CORONARY ARTERY DISEASE [None]
